FAERS Safety Report 11124252 (Version 1)
Quarter: 2015Q2

REPORT INFORMATION
  Report Type: Spontaneous
  Country: US (occurrence: None)
  Receive Date: 20150519
  Receipt Date: 20150519
  Transmission Date: 20150821
  Serious: Yes (Disabling, Other)
  Sender: FDA-Public Use
  Company Number: None

PATIENT
  Age: 29 Year
  Sex: Female
  Weight: 56.7 kg

DRUGS (8)
  1. MULTIVITAMIN [Concomitant]
     Active Substance: VITAMINS
  2. PHOSPHATIDYLSERENE [Concomitant]
  3. VITAMIN B COMPLEX [Concomitant]
     Active Substance: CYANOCOBALAMIN\DEXPANTHENOL\NIACINAMIDE\PYRIDOXINE HYDROCHLORIDE\RIBOFLAVIN 5^-PHOSPHATE SODIUM\THIAMINE HYDROCHLORIDE\VITAMIN B COMPLEX
  4. MILK THISTLE (SILYMARIN) [Concomitant]
  5. ESCITALOPRAM [Suspect]
     Active Substance: ESCITALOPRAM OXALATE
     Indication: TINNITUS
     Dosage: 1, ONCE DAILY, TAKEN BY MOUTH
     Route: 048
     Dates: start: 20150225, end: 20150429
  6. B12 METHYLCOBALAMIN ??? [Concomitant]
  7. IONIC MAGNESIUM [Concomitant]
  8. JUNEL [Concomitant]
     Active Substance: ETHINYL ESTRADIOL\NORETHINDRONE ACETATE

REACTIONS (23)
  - Nausea [None]
  - Crying [None]
  - Negative thoughts [None]
  - Mood swings [None]
  - Anxiety [None]
  - Amnesia [None]
  - Suicidal ideation [None]
  - Weight increased [None]
  - Hyperhidrosis [None]
  - Dyspnoea [None]
  - Agoraphobia [None]
  - Bruxism [None]
  - Migraine [None]
  - Heart rate abnormal [None]
  - Vertigo [None]
  - Mental impairment [None]
  - Orthostatic hypotension [None]
  - Dysstasia [None]
  - Confusional state [None]
  - Insomnia [None]
  - Dyspepsia [None]
  - Aphasia [None]
  - Syncope [None]
